FAERS Safety Report 22190705 (Version 2)
Quarter: 2024Q4

REPORT INFORMATION
  Report Type: Spontaneous
  Country: BR (occurrence: BR)
  Receive Date: 20230410
  Receipt Date: 20241017
  Transmission Date: 20250114
  Serious: No
  Sender: CELLTRION
  Company Number: BR-CELLTRION INC.-2023BR007222

PATIENT

DRUGS (9)
  1. INFLIXIMAB [Suspect]
     Active Substance: INFLIXIMAB
     Indication: Rheumatoid arthritis
     Dosage: 2 AMPOULES EVERY 2 MONTHS
     Route: 042
     Dates: start: 202210
  2. INFLIXIMAB [Suspect]
     Active Substance: INFLIXIMAB
     Indication: Systemic lupus erythematosus
     Dosage: 2 AMPOULES EVERY 3 MONTHS
     Route: 042
  3. PREDNISOLONE [Concomitant]
     Active Substance: PREDNISOLONE
     Indication: Rheumatoid arthritis
     Dosage: 1 TABLET PER DAY (START: 2 YEARS)
     Route: 048
  4. PROPRANOLOL HYDROCHLORIDE [Concomitant]
     Active Substance: PROPRANOLOL HYDROCHLORIDE
     Indication: Portal hypertension
     Dosage: 2 CAPSULES PER DAY (START: 36 YEARS)
     Route: 048
  5. METHOTREXATE SODIUM [Concomitant]
     Active Substance: METHOTREXATE SODIUM
     Indication: Rheumatoid arthritis
     Dosage: 3 TABLETS ONCE A WEEK (START: 2 YEARS)
     Route: 048
  6. FOLIC ACID [Concomitant]
     Active Substance: FOLIC ACID
     Indication: Rheumatoid arthritis
     Dosage: 1 TABLET ONCE A WEEK (START: 2 YEARS)
     Route: 048
  7. CHLOROQUINE [Concomitant]
     Active Substance: CHLOROQUINE
     Indication: Rheumatoid arthritis
     Dosage: 1 CAPSULE PER DAY (START: 2 YEARS)
     Route: 048
  8. VITAMIN D NOS [Concomitant]
     Active Substance: CHOLECALCIFEROL\ERGOCALCIFEROL
     Indication: Vitamin supplementation
     Dosage: 1 CAPSULE PER DAY (START: 6 YEARS)
     Route: 048
  9. HYDROXYCHLOROQUINE [Concomitant]
     Active Substance: HYDROXYCHLOROQUINE
     Dosage: 1 TABLET A DAY

REACTIONS (1)
  - Intentional product use issue [Unknown]
